FAERS Safety Report 22287711 (Version 3)
Quarter: 2024Q3

REPORT INFORMATION
  Report Type: Spontaneous
  Country: DE (occurrence: DE)
  Receive Date: 20230505
  Receipt Date: 20240712
  Transmission Date: 20241017
  Serious: Yes (Death, Life-Threatening, Other)
  Sender: CELLTRION
  Company Number: DE-CELLTRION INC.-2023DE009431

PATIENT

DRUGS (30)
  1. RITUXIMAB [Suspect]
     Active Substance: RITUXIMAB
     Indication: Diffuse large B-cell lymphoma
     Dosage: 375 MG, DAY 1 OF EACH 28 DAY CYCLE FOR 6 CYCLES
     Route: 042
  2. RITUXIMAB [Suspect]
     Active Substance: RITUXIMAB
     Indication: Diffuse large B-cell lymphoma stage IV
     Dosage: 375 MG/M2, CYCLIC (DAY 1)
     Route: 042
  3. RITUXIMAB [Suspect]
     Active Substance: RITUXIMAB
     Indication: Diffuse large B-cell lymphoma recurrent
     Dosage: 375 MILLIGRAM/SQ. METER (COMPLETED SIX COURSES OF R-CHOP-14)
  4. RITUXIMAB [Suspect]
     Active Substance: RITUXIMAB
     Dosage: 375 MILLIGRAM/SQ. METER, CYCLE (HEMOTHERAPEUTIC-FREE PCYC1123-CA TRIAL; DAY 1, CYCLICAL)
     Route: 042
  5. RITUXIMAB [Suspect]
     Active Substance: RITUXIMAB
     Dosage: 375 MILLIGRAM/SQ. METER, DAY 1
     Route: 042
  6. LENALIDOMIDE [Suspect]
     Active Substance: LENALIDOMIDE
     Indication: Diffuse large B-cell lymphoma
     Dosage: 20 MG, CYCLIC (DAY 1 TO 21 OF 28-DAY CYCLE)
     Route: 048
  7. LENALIDOMIDE [Suspect]
     Active Substance: LENALIDOMIDE
     Indication: Diffuse large B-cell lymphoma stage IV
  8. LENALIDOMIDE [Suspect]
     Active Substance: LENALIDOMIDE
     Indication: Diffuse large B-cell lymphoma recurrent
  9. LENALIDOMIDE [Suspect]
     Active Substance: LENALIDOMIDE
     Indication: Diffuse large B-cell lymphoma recurrent
     Dosage: 20 MG, 1.33 DAY
     Route: 048
  10. LENALIDOMIDE [Suspect]
     Active Substance: LENALIDOMIDE
     Indication: Diffuse large B-cell lymphoma
     Dosage: 20 MG, (D1-21 Q28)
     Route: 048
  11. IBRUTINIB [Suspect]
     Active Substance: IBRUTINIB
     Indication: Diffuse large B-cell lymphoma recurrent
     Dosage: 560 MG, QD
     Route: 048
  12. IBRUTINIB [Suspect]
     Active Substance: IBRUTINIB
     Indication: Diffuse large B-cell lymphoma
     Dosage: 560 MILLIGRAM, DAILY
     Route: 048
  13. FILGRASTIM [Suspect]
     Active Substance: FILGRASTIM
     Indication: Diffuse large B-cell lymphoma stage IV
     Dosage: SHORT ACTING G-CSF -FILGRASTIM ON DAY 4 UNTIL GRANULOCYTE REGENERATION
     Route: 058
     Dates: start: 20180228
  14. FILGRASTIM [Suspect]
     Active Substance: FILGRASTIM
     Indication: Diffuse large B-cell lymphoma recurrent
     Dosage: SHORT ACTING G-CSF -FILGRASTIM ON DAY 4 UNTIL GRANULOCYTE REGENERATION
     Route: 058
     Dates: start: 201801
  15. FILGRASTIM [Suspect]
     Active Substance: FILGRASTIM
     Dosage: 375 MG/M2(DAY 1OF EACH 28 DAY CYCLE FOR 6 CYCLES)
     Route: 058
     Dates: start: 201801
  16. CYTARABINE [Suspect]
     Active Substance: CYTARABINE
     Indication: Acute myelomonocytic leukaemia
     Dosage: 100 MILLIGRAM, QD (A MILD, PALLIATIVE THERAPY REGIMENS)
     Route: 042
  17. IMBRUVICA [Suspect]
     Active Substance: IBRUTINIB
     Indication: Diffuse large B-cell lymphoma
     Dosage: 560 MILLIGRAM, QD
     Route: 048
  18. IMBRUVICA [Suspect]
     Active Substance: IBRUTINIB
     Indication: Diffuse large B-cell lymphoma stage IV
  19. IMBRUVICA [Suspect]
     Active Substance: IBRUTINIB
     Indication: Diffuse large B-cell lymphoma recurrent
  20. AZACITIDINE [Suspect]
     Active Substance: AZACITIDINE
     Indication: Acute myeloid leukaemia
     Dosage: 75 MG/M2, ON DAY 1-7
     Route: 058
  21. CYTARABINE [Suspect]
     Active Substance: CYTARABINE
     Indication: Acute myeloid leukaemia
     Dosage: 100 MG, QD
     Route: 042
  22. IBRUTINIB [Concomitant]
     Active Substance: IBRUTINIB
     Indication: Diffuse large B-cell lymphoma recurrent
     Dosage: 560 MG, QD (DAILY) (CHEMOTHERAPEUTIC-FREE PCYC1123-CA TRIAL)/ 560 MILLIGRAM, QD
     Route: 048
     Dates: start: 20171025
  23. IBRUTINIB [Concomitant]
     Active Substance: IBRUTINIB
     Indication: Diffuse large B-cell lymphoma stage IV
  24. CYCLOPHOSPHAMIDE [Concomitant]
     Active Substance: CYCLOPHOSPHAMIDE
     Indication: Diffuse large B-cell lymphoma stage IV
     Dosage: 750 MILLIGRAM/SQ. METER (COMPLETED SIX COURSES OF R-CHOP-14)
  25. VINCRISTINE [Concomitant]
     Active Substance: VINCRISTINE
     Indication: Diffuse large B-cell lymphoma stage IV
     Dosage: 1 MILLIGRAM (COMPLETED SIX COURSES OF R-CHOP-14 DAY 1)
     Route: 042
  26. LENALIDOMIDE [Concomitant]
     Active Substance: LENALIDOMIDE
     Indication: Diffuse large B-cell lymphoma stage IV
     Dosage: 20 MILLIGRAM (CHEMOTHERAPEUTIC-FREE PCYC1123-CA TRIAL; D1-21 Q28, CYCLIC)
     Route: 048
     Dates: start: 20171025
  27. LENALIDOMIDE [Concomitant]
     Active Substance: LENALIDOMIDE
     Indication: Diffuse large B-cell lymphoma recurrent
  28. PREDNISONE [Concomitant]
     Active Substance: PREDNISONE
     Indication: Diffuse large B-cell lymphoma stage IV
     Dosage: 100 MILLIGRAM (COMPLETED SIX COURSES OF R-CHOP-14 DAY 1-5)
     Route: 048
  29. FILGRASTIM [Concomitant]
     Active Substance: FILGRASTIM
     Indication: Diffuse large B-cell lymphoma
  30. DOXORUBICIN [Concomitant]
     Active Substance: DOXORUBICIN
     Indication: Diffuse large B-cell lymphoma stage IV
     Dosage: 50 MG/M, (COMPLETED SIX COURSES OF

REACTIONS (9)
  - Second primary malignancy [Fatal]
  - Drug ineffective [Fatal]
  - Acute myeloid leukaemia [Fatal]
  - Neutropenia [Recovering/Resolving]
  - Therapeutic product effect incomplete [Unknown]
  - Product use issue [Unknown]
  - Therapy partial responder [Unknown]
  - Off label use [Unknown]
  - Product use in unapproved indication [Unknown]

NARRATIVE: CASE EVENT DATE: 20180101
